FAERS Safety Report 21296954 (Version 1)
Quarter: 2022Q3

REPORT INFORMATION
  Report Type: Spontaneous
  Country: MX (occurrence: MX)
  Receive Date: 20220906
  Receipt Date: 20220906
  Transmission Date: 20221027
  Serious: Yes (Other)
  Sender: FDA-Public Use
  Company Number: MX-SA-SAC20220905000851

PATIENT
  Sex: Female

DRUGS (1)
  1. DRONEDARONE [Suspect]
     Active Substance: DRONEDARONE
     Indication: Product used for unknown indication
     Dosage: UNK
     Route: 048

REACTIONS (4)
  - Arrhythmia [Unknown]
  - Myocarditis [Unknown]
  - Cardiac disorder [Unknown]
  - Cardiac valve disease [Unknown]
